FAERS Safety Report 14790079 (Version 2)
Quarter: 2018Q2

REPORT INFORMATION
  Report Type: Spontaneous
  Country: AR (occurrence: AR)
  Receive Date: 20180423
  Receipt Date: 20180502
  Transmission Date: 20180711
  Serious: Yes (Hospitalization, Other)
  Sender: FDA-Public Use
  Company Number: PHHY2018AR071314

PATIENT
  Age: 91 Year
  Sex: Male

DRUGS (1)
  1. EXFORGE [Suspect]
     Active Substance: AMLODIPINE BESYLATE\VALSARTAN
     Indication: BLOOD PRESSURE ABNORMAL
     Dosage: 1 DF, QD
     Route: 065
     Dates: end: 201709

REACTIONS (9)
  - Blood pressure systolic increased [Recovering/Resolving]
  - Joint swelling [Recovered/Resolved]
  - Heart rate increased [Unknown]
  - Extrasystoles [Unknown]
  - Peripheral swelling [Unknown]
  - Complication associated with device [Unknown]
  - Bacillus infection [Unknown]
  - Pleural effusion [Unknown]
  - Pericardial effusion [Unknown]
